APPROVED DRUG PRODUCT: E-Z PREP 220
Active Ingredient: POVIDONE-IODINE
Strength: 5%
Dosage Form/Route: SPONGE;TOPICAL
Application: N019382 | Product #003
Applicant: CLINIPAD CORP
Approved: Jul 25, 1989 | RLD: No | RS: No | Type: DISCN